FAERS Safety Report 9523168 (Version 1)
Quarter: 2013Q3

REPORT INFORMATION
  Report Type: Spontaneous
  Country: US (occurrence: US)
  Receive Date: 20130913
  Receipt Date: 20130913
  Transmission Date: 20140515
  Serious: No
  Sender: FDA-Public Use
  Company Number: US-TEVA-432463USA

PATIENT
  Sex: Female
  Weight: 58.11 kg

DRUGS (4)
  1. PLAN B ONE-STEP [Suspect]
     Indication: POST COITAL CONTRACEPTION
     Dosage: 1.5 MILLIGRAM DAILY;
     Route: 048
     Dates: start: 201306, end: 201306
  2. PLAN B ONE-STEP [Suspect]
     Dosage: 1.5 MILLIGRAM DAILY;
     Route: 048
     Dates: start: 201307, end: 201307
  3. PLAN B ONE-STEP [Suspect]
     Dosage: 1.5 MILLIGRAM DAILY;
     Route: 048
     Dates: start: 201308, end: 201308
  4. PLAN B ONE-STEP [Suspect]
     Dosage: 1.5 MILLIGRAM DAILY;
     Route: 048
     Dates: start: 20130907, end: 20130907

REACTIONS (4)
  - Weight increased [Not Recovered/Not Resolved]
  - Libido decreased [Not Recovered/Not Resolved]
  - Pelvic pain [Not Recovered/Not Resolved]
  - Menstruation irregular [Unknown]
